FAERS Safety Report 4515257-6 (Version None)
Quarter: 2004Q4

REPORT INFORMATION
  Report Type: 
  Country: None (occurrence: None)
  Receive Date: 20041126
  Receipt Date: 20041115
  Transmission Date: 20050328
  Serious: Yes (Other)
  Sender: FDA-Public Use
  Company Number: DE-2004-034149

PATIENT
  Age: 50 Year
  Sex: Female

DRUGS (1)
  1. BETAFERON (INTERFERON BETA - 1B) INJECTION, 250UG [Suspect]

REACTIONS (3)
  - PARANOIA [None]
  - PSYCHOTIC DISORDER [None]
  - VISUAL EVOKED POTENTIALS ABNORMAL [None]
